FAERS Safety Report 5811707-3 (Version None)
Quarter: 2008Q3

REPORT INFORMATION
  Report Type: 
  Country: None (occurrence: None)
  Receive Date: 20080716
  Receipt Date: 20080711
  Transmission Date: 20090109
  Serious: Yes (Other)
  Sender: FDA-Public Use
  Company Number: A0737245A

PATIENT
  Sex: Male
  Weight: 81.8 kg

DRUGS (5)
  1. LAMICTAL [Suspect]
     Indication: BIPOLAR DISORDER
     Dosage: 300MG PER DAY
     Route: 048
  2. CONCERTA [Concomitant]
  3. NEURONTIN [Concomitant]
  4. REMERON [Concomitant]
  5. LEXAPRO [Concomitant]

REACTIONS (15)
  - AMNESIA [None]
  - ASTHENIA [None]
  - CHEST PAIN [None]
  - DRY EYE [None]
  - EYE IRRITATION [None]
  - FOREIGN BODY SENSATION IN EYES [None]
  - HEART RATE INCREASED [None]
  - HYPOTHYROIDISM [None]
  - MITRAL VALVE PROLAPSE [None]
  - PALPITATIONS [None]
  - PANIC ATTACK [None]
  - RASH [None]
  - ROSACEA [None]
  - SLUGGISHNESS [None]
  - URINARY INCONTINENCE [None]
